FAERS Safety Report 17090873 (Version 1)
Quarter: 2019Q4

REPORT INFORMATION
  Report Type: Spontaneous
  Country: FR (occurrence: FR)
  Receive Date: 20191129
  Receipt Date: 20191129
  Transmission Date: 20200122
  Serious: Yes (Hospitalization)
  Sender: FDA-Public Use
  Company Number: FR-SUN PHARMACEUTICAL INDUSTRIES LTD-2019RR-229043

PATIENT
  Age: 56 Year
  Sex: Male
  Weight: 94 kg

DRUGS (4)
  1. TEMESTA 1 MG, COMPRIME SECABLE [Suspect]
     Active Substance: LORAZEPAM
     Indication: INTENTIONAL OVERDOSE
     Dosage: 6 DOSAGE FORM, IN TOTAL
     Route: 048
     Dates: start: 20191014, end: 20191014
  2. LEXOMIL 12 MG, COMPRIME [Suspect]
     Active Substance: BROMAZEPAM
     Indication: INTENTIONAL OVERDOSE
     Dosage: 14 DOSAGE FORM, IN TOTAL
     Dates: start: 20191014, end: 20191014
  3. LOPRESSOR L.P. 200 MG, COMPRIME SECABLE A LIBERATION PROLONGEE [Suspect]
     Active Substance: METOPROLOL TARTRATE
     Indication: INTENTIONAL OVERDOSE
     Dosage: 8 DOSAGE FORM, IN TOTAL
     Route: 048
     Dates: start: 20191014, end: 20191014
  4. PARACETAMOL [Suspect]
     Active Substance: ACETAMINOPHEN
     Indication: INTENTIONAL OVERDOSE
     Dosage: 4 GRAMS, IN TOTAL
     Route: 048
     Dates: start: 20191014, end: 20191014

REACTIONS (4)
  - Pruritus [Recovered/Resolved]
  - Poisoning deliberate [Recovered/Resolved]
  - Hypertension [Recovered/Resolved]
  - Hypokalaemia [Recovered/Resolved]

NARRATIVE: CASE EVENT DATE: 20191014
